FAERS Safety Report 8902243 (Version 1)
Quarter: 2012Q4

REPORT INFORMATION
  Report Type: 
  Country: FR (occurrence: FR)
  Receive Date: 20121112
  Receipt Date: 20121112
  Transmission Date: 20130627
  Serious: Yes (Other)
  Sender: FDA-Public Use
  Company Number: FR-ROCHE-1152558

PATIENT

DRUGS (1)
  1. NAPROXEN [Suspect]
     Indication: DRUG HYPERSENSITIVITY
     Route: 050

REACTIONS (3)
  - Angioedema [Unknown]
  - Urticaria [Unknown]
  - Conjunctivitis [Unknown]
